FAERS Safety Report 7323666-5 (Version None)
Quarter: 2011Q1

REPORT INFORMATION
  Report Type: 
  Country: None (occurrence: None)
  Receive Date: 20110301
  Receipt Date: 20110216
  Transmission Date: 20110831
  Serious: No
  Sender: FDA-Public Use
  Company Number: US-ELI_LILLY_AND_COMPANY-US201102005252

PATIENT
  Age: 55 Year
  Sex: Male

DRUGS (4)
  1. CYMBALTA [Suspect]
     Indication: DEPRESSION
     Dosage: UNK, UNKNOWN
  2. CYMBALTA [Suspect]
     Dosage: 60 MG, 2/D
  3. CYMBALTA [Suspect]
     Dosage: UNK, UNKNOWN
  4. ANTIPSYCHOTICS [Concomitant]

REACTIONS (1)
  - HEPATIC ENZYME INCREASED [None]
